FAERS Safety Report 9548430 (Version 2)
Quarter: 2013Q4

REPORT INFORMATION
  Report Type: Report from Study
  Country: BR (occurrence: BR)
  Receive Date: 20130924
  Receipt Date: 20131022
  Transmission Date: 20140711
  Serious: Yes (Hospitalization)
  Sender: FDA-Public Use
  Company Number: PHHY2013BR106073

PATIENT
  Age: 89 Year
  Sex: Female

DRUGS (9)
  1. DIOVAN [Suspect]
     Indication: HYPERTENSION
     Dosage: 1 TABLET (80 MG), UNK
     Route: 048
  2. DIOVAN [Suspect]
     Dosage: 0.5 TABLET (80 MG), DAILY
     Route: 048
     Dates: start: 200602
  3. ANCORON [Concomitant]
     Indication: PULSE ABNORMAL
     Dosage: 0.5 DF (AMIO 200 MG), DAILY
     Route: 048
     Dates: start: 2005
  4. CARVEDILOL [Concomitant]
     Dosage: UNK UKN, UNK
     Route: 048
  5. LIPITOR [Concomitant]
     Indication: BLOOD CHOLESTEROL ABNORMAL
     Dosage: 1 DF (ATOR 10 MG), DAILY
     Route: 048
  6. PLAVIX [Concomitant]
     Dosage: 1 DF (CLOP 75 MG), DAILY
  7. MONOCORDIL [Concomitant]
     Dosage: 1 DF (ISOS 20 MG), DAILY
     Route: 048
  8. SOMALGIN CARDIO [Concomitant]
     Dosage: 1 DF (ASPI 100 MG), DAILY
     Route: 048
  9. SYNTHROID [Concomitant]
     Dosage: 1 DF (LEVO 50 MG), DAILY
     Route: 048
     Dates: start: 2006

REACTIONS (8)
  - Musculoskeletal chest pain [Recovered/Resolved]
  - Pain [Recovered/Resolved]
  - Pain in extremity [Recovered/Resolved]
  - Angina pectoris [Recovered/Resolved]
  - Cardiac disorder [Unknown]
  - Blood pressure decreased [Recovered/Resolved]
  - Blood pressure inadequately controlled [Recovered/Resolved]
  - Wrong technique in drug usage process [Unknown]
